FAERS Safety Report 4831196-5 (Version None)
Quarter: 2005Q4

REPORT INFORMATION
  Report Type: 
  Country: None (occurrence: None)
  Receive Date: 20051118
  Receipt Date: 20051108
  Transmission Date: 20060501
  Serious: Yes (Death, Hospitalization)
  Sender: FDA-Public Use
  Company Number: JP-JNJFOC-20050806322

PATIENT
  Sex: Male

DRUGS (41)
  1. FENTANYL CITRATE [Suspect]
     Route: 062
  2. FENTANYL CITRATE [Suspect]
     Route: 062
  3. FENTANYL CITRATE [Suspect]
     Route: 062
  4. FENTANYL CITRATE [Suspect]
     Route: 062
  5. FENTANYL CITRATE [Suspect]
     Route: 062
  6. FENTANYL CITRATE [Suspect]
     Route: 062
  7. FENTANYL CITRATE [Suspect]
     Route: 062
  8. FENTANYL CITRATE [Suspect]
     Route: 062
  9. FENTANYL CITRATE [Suspect]
     Indication: CANCER PAIN
     Route: 062
  10. FAMOTIDINE [Concomitant]
     Dosage: 2 DOSAGE FORM/DAY
  11. MAINTENANCE MEDIUM 4 [Concomitant]
  12. MAINTENANCE MEDIUM 4 [Concomitant]
  13. MAINTENANCE MEDIUM 4 [Concomitant]
  14. MAINTENANCE MEDIUM 3 [Concomitant]
  15. MAINTENANCE MEDIUM 3 [Concomitant]
  16. MAINTENANCE MEDIUM 3 [Concomitant]
  17. DEXAMETHASONE [Concomitant]
     Dosage: 2 DOSAGE FORM/DAY
  18. METOCLOPRAMIDE [Concomitant]
  19. METOCLOPRAMIDE [Concomitant]
     Indication: GASTRIC CANCER
     Dosage: 1-2 DOSAGE FORM/DAY
  20. FUROSEMIDE [Concomitant]
  21. FUROSEMIDE [Concomitant]
     Dosage: 1 DOSAGE FORM/DAY
  22. FLUOROURACIL [Concomitant]
     Indication: GASTRIC CANCER
  23. METHOTREXATE [Concomitant]
     Indication: GASTRIC CANCER
  24. LACTATED RINGER [Concomitant]
  25. LACTATED RINGER [Concomitant]
  26. LACTATED RINGER [Concomitant]
  27. AZASETRON HYDROCHLORIDE [Concomitant]
     Indication: GASTRIC CANCER
     Dosage: 1-2 DOSAGE FORM/DAY
  28. PIPERACILLIN SODIUM [Concomitant]
     Dosage: 2 DOSAGE FORM/DAY
  29. CARBOPLATIN [Concomitant]
     Indication: GASTRIC CANCER
  30. GRANISETRON  HCL [Concomitant]
     Indication: GASTRIC CANCER
     Dosage: 1-2 DOSAGE FORM/DAY
  31. SUCRALFATE [Concomitant]
     Route: 048
  32. MORPHINE [Concomitant]
     Route: 051
  33. MORPHINE [Concomitant]
     Dosage: 1 DOSAGE FORM/DAY
     Route: 048
  34. MAGNESIUM OXIDE [Concomitant]
     Route: 048
  35. ODANSETRON [Concomitant]
     Dosage: 1 DOSAGE FORM/DAY
     Route: 048
  36. ACETAZOLAMIDE [Concomitant]
     Indication: GASTRIC CANCER
     Route: 048
  37. LANSOPRAZOLE [Concomitant]
     Route: 048
  38. DOMPERIDONE [Concomitant]
  39. SENNOSIDE [Concomitant]
     Route: 048
  40. LEUCOVORIN CALCIUM [Concomitant]
     Indication: GASTRIC CANCER
     Route: 048
  41. PROCHLORPERAZINE MALEATE [Concomitant]
     Indication: GASTRIC CANCER
     Route: 048

REACTIONS (6)
  - DISEASE PROGRESSION [None]
  - GASTRIC CANCER [None]
  - METASTASES TO PLEURA [None]
  - NAUSEA [None]
  - PLEURAL EFFUSION [None]
  - VOMITING [None]
